FAERS Safety Report 11947746 (Version 1)
Quarter: 2016Q1

REPORT INFORMATION
  Report Type: Spontaneous
  Country: HU (occurrence: HU)
  Receive Date: 20160125
  Receipt Date: 20160125
  Transmission Date: 20160526
  Serious: Yes (Death)
  Sender: FDA-Public Use
  Company Number: HU-SA-2016SA013356

PATIENT
  Age: 64 Year
  Sex: Male

DRUGS (4)
  1. STILNOX [Suspect]
     Active Substance: ZOLPIDEM TARTRATE
     Indication: SLEEP DISORDER
     Route: 065
     Dates: start: 20151028, end: 20151028
  2. STILNOX [Suspect]
     Active Substance: ZOLPIDEM TARTRATE
     Indication: SLEEP DISORDER
     Route: 065
     Dates: start: 20151029, end: 20151029
  3. TENAXUM [Concomitant]
     Active Substance: RILMENIDINE
     Indication: HYPERTENSION
     Route: 065
  4. AMLODIPINE BESILATE/PERINDOPRIL ERBUMINE [Concomitant]
     Indication: HYPERTENSION
     Route: 065

REACTIONS (5)
  - Nausea [Fatal]
  - Abdominal pain [Fatal]
  - Night sweats [Fatal]
  - Pancreatitis [Fatal]
  - Asthenia [Unknown]
